FAERS Safety Report 9922423 (Version 1)
Quarter: 2014Q1

REPORT INFORMATION
  Report Type: Spontaneous
  Country: US (occurrence: None)
  Receive Date: 20140224
  Receipt Date: 20140224
  Transmission Date: 20141002
  Serious: Yes (Other)
  Sender: FDA-Public Use
  Company Number: None

PATIENT
  Age: 29 Year
  Sex: Female
  Weight: 72.58 kg

DRUGS (1)
  1. NORA-BE .35MG WATSON [Suspect]
     Indication: CONTRACEPTION
     Route: 048
     Dates: start: 20091101, end: 20140220

REACTIONS (3)
  - Pain [None]
  - Abortion spontaneous [None]
  - Pregnancy on oral contraceptive [None]
